FAERS Safety Report 7079895-1 (Version None)
Quarter: 2010Q4

REPORT INFORMATION
  Report Type: 
  Country: None (occurrence: None)
  Receive Date: 20101102
  Receipt Date: 20101022
  Transmission Date: 20110411
  Serious: Yes (Hospitalization)
  Sender: FDA-Public Use
  Company Number: BE-PFIZER INC-2010135036

PATIENT
  Age: 75 Year
  Sex: Female

DRUGS (1)
  1. EXEMESTANE [Suspect]
     Indication: BREAST CANCER
     Dosage: UNK
     Route: 048
     Dates: start: 20050628

REACTIONS (1)
  - ARTERIOSCLEROSIS [None]
